FAERS Safety Report 22179364 (Version 1)
Quarter: 2023Q2

REPORT INFORMATION
  Report Type: Spontaneous
  Country: GB (occurrence: GB)
  Receive Date: 20230406
  Receipt Date: 20230406
  Transmission Date: 20230721
  Serious: No
  Sender: FDA-Public Use
  Company Number: None

PATIENT
  Age: 33 Year
  Sex: Male
  Weight: 105 kg

DRUGS (5)
  1. IBUPROFEN [Suspect]
     Active Substance: IBUPROFEN
     Indication: Physical examination
     Dosage: 600 MILLIGRAM (TABLETS)
     Route: 048
  2. COCODAMOL [Concomitant]
     Active Substance: ACETAMINOPHEN\CODEINE PHOSPHATE
     Indication: Product used for unknown indication
     Dosage: UNK 30MG/500MG TABLETS (1-2 TABLETS UP TO FOUR TIMES DAILY TO BE REDUCED BY 10 TABS PER MONTH)
     Route: 065
     Dates: start: 20221123
  3. OMEPRAZOLE [Concomitant]
     Active Substance: OMEPRAZOLE
     Indication: Product used for unknown indication
     Dosage: 20 MILLIGRAM GASTRO-RESISTANT CAPSULES (1 CAPSULE ONCE A DAY WHEN TAKING IBUPROFEN)
     Route: 065
     Dates: start: 20221123
  4. OMEPRAZOLE [Concomitant]
     Active Substance: OMEPRAZOLE
     Dosage: 20 MILLIGRAM GASTRO-RESISTANT CAPSULES (1 CAPSULE ONCE A DAY WHEN TAKING IBUPROFEN)
     Route: 065
     Dates: start: 20221031
  5. OMEPRAZOLE [Concomitant]
     Active Substance: OMEPRAZOLE
     Dosage: 20 MILLIGRAM GASTRO-RESISTANT CAPSULES (1 CAPSULE ONCE A DAY WHEN TAKING IBUPROFEN)
     Route: 065
     Dates: start: 20221031, end: 20221123

REACTIONS (1)
  - Adverse drug reaction [Recovered/Resolved]
